FAERS Safety Report 26118378 (Version 2)
Quarter: 2025Q4

REPORT INFORMATION
  Report Type: Spontaneous
  Country: US (occurrence: US)
  Receive Date: 20251203
  Receipt Date: 20251210
  Transmission Date: 20260118
  Serious: Yes (Life-Threatening, Hospitalization, Other)
  Sender: PFIZER
  Company Number: US-PFIZER INC-PV202500141861

PATIENT
  Age: 68 Year
  Sex: Male

DRUGS (9)
  1. MILRINONE [Suspect]
     Active Substance: MILRINONE
     Indication: Heart transplant
     Dosage: 0.375 MCG/KG/MIN AT HOME FOR 12 MONTHS
     Route: 041
  2. MILRINONE [Suspect]
     Active Substance: MILRINONE
     Indication: Cardiac failure
     Dosage: TITRATE DOWN THE MILRINONE DOSE TO 0.25 MCG/KG/MIN
     Route: 041
  3. MILRINONE [Suspect]
     Active Substance: MILRINONE
     Dosage: TITRATE DOWN THE MILRINONE DOSE TO 0.125 MCG/KG/MIN
     Route: 041
  4. METOPROLOL [Concomitant]
     Active Substance: METOPROLOL
     Indication: Hypertension
     Dosage: 12.5 MG, DAILY
     Route: 048
  5. TORSEMIDE [Concomitant]
     Active Substance: TORSEMIDE
     Indication: Polyuria
     Dosage: 40 MG, DAILY
     Route: 048
  6. TORSEMIDE [Concomitant]
     Active Substance: TORSEMIDE
     Indication: Hypervolaemia
     Dosage: 50 MG, 2X/DAY FOLLOWED BY ONCE-DAILY DOSING FROM DAY 2.
     Route: 048
  7. SPIRONOLACTONE [Concomitant]
     Active Substance: SPIRONOLACTONE
     Indication: Hypertension
     Dosage: 100 MG, DAILY
  8. DIGOXIN [Concomitant]
     Active Substance: DIGOXIN
     Indication: Hypertension
     Dosage: 0.25 MG, DAILY
     Route: 048
  9. DIGOXIN [Concomitant]
     Active Substance: DIGOXIN
     Dosage: 0.125 MG, DAILY
     Route: 048

REACTIONS (4)
  - Diastolic dysfunction [Unknown]
  - Ventricular fibrillation [Unknown]
  - Ventricular tachycardia [Unknown]
  - Off label use [Unknown]
